FAERS Safety Report 5394169-2 (Version None)
Quarter: 2007Q3

REPORT INFORMATION
  Report Type: 
  Country: None (occurrence: None)
  Receive Date: 20070723
  Receipt Date: 20070319
  Transmission Date: 20080115
  Serious: No
  Sender: FDA-Public Use
  Company Number: A0643701A

PATIENT
  Sex: Male

DRUGS (4)
  1. AVANDIA [Suspect]
     Route: 065
  2. COREG [Concomitant]
  3. ZETIA [Concomitant]
  4. VYTORIN [Concomitant]

REACTIONS (5)
  - ABDOMINAL PAIN UPPER [None]
  - DEPRESSED MOOD [None]
  - MYALGIA [None]
  - SOMNOLENCE [None]
  - STOMACH DISCOMFORT [None]
